FAERS Safety Report 12678123 (Version 1)
Quarter: 2016Q3

REPORT INFORMATION
  Report Type: Spontaneous
  Country: US (occurrence: US)
  Receive Date: 20160823
  Receipt Date: 20160823
  Transmission Date: 20161109
  Serious: Yes (Hospitalization, Other)
  Sender: FDA-Public Use
  Company Number: US-ABBVIE-16P-163-1706796-00

PATIENT
  Age: 54 Year
  Sex: Male

DRUGS (3)
  1. COPEGUS [Suspect]
     Active Substance: RIBAVIRIN
     Indication: HEPATITIS C
     Dosage: 3 TABETS BID
     Route: 048
     Dates: start: 20160722
  2. VIEKIRA PAK [Suspect]
     Active Substance: DASABUVIR\OMBITASVIR\PARITAPREVIR\RITONAVIR
     Indication: CHRONIC HEPATITIS C
     Dosage: 12.5/75/50MG BID AND DASABUVIR 250MG BID
     Route: 048
     Dates: start: 20160722
  3. GABAPENTIN. [Concomitant]
     Active Substance: GABAPENTIN
     Indication: PAIN
     Route: 048
     Dates: start: 201502

REACTIONS (13)
  - Sinus tachycardia [Recovering/Resolving]
  - Pharyngeal oedema [Recovered/Resolved]
  - Supraventricular tachycardia [Recovered/Resolved]
  - Blood pressure increased [Recovering/Resolving]
  - Abdominal pain upper [Unknown]
  - Blood bilirubin increased [Not Recovered/Not Resolved]
  - Myocardial infarction [Recovering/Resolving]
  - Chest pain [Recovered/Resolved]
  - Vision blurred [Recovered/Resolved]
  - Abdominal discomfort [Recovering/Resolving]
  - Protein total increased [Not Recovered/Not Resolved]
  - Mean cell volume increased [Not Recovered/Not Resolved]
  - Swollen tongue [Recovered/Resolved]

NARRATIVE: CASE EVENT DATE: 20160808
